FAERS Safety Report 9485713 (Version 1)
Quarter: 2013Q3

REPORT INFORMATION
  Report Type: Spontaneous
  Country: US (occurrence: None)
  Receive Date: 20130827
  Receipt Date: 20130827
  Transmission Date: 20140515
  Serious: Yes (Hospitalization)
  Sender: FDA-Public Use
  Company Number: None

PATIENT
  Age: 49 None
  Sex: Female

DRUGS (8)
  1. FLEXERIL [Suspect]
     Indication: FIBROMYALGIA
     Route: 048
  2. FLEXERIL [Suspect]
     Indication: PAIN IN EXTREMITY
     Route: 048
  3. CELEXA [Concomitant]
  4. SINGULAIR [Concomitant]
  5. CIPRO [Concomitant]
  6. VITAMIN D [Concomitant]
  7. GABAPENTIN [Concomitant]
  8. BACLOFEN [Concomitant]

REACTIONS (5)
  - Somnolence [None]
  - Overdose [None]
  - Gait disturbance [None]
  - Unresponsive to stimuli [None]
  - Mydriasis [None]
